FAERS Safety Report 18632764 (Version 1)
Quarter: 2020Q4

REPORT INFORMATION
  Report Type: Spontaneous
  Country: US (occurrence: US)
  Receive Date: 20201217
  Receipt Date: 20201217
  Transmission Date: 20210114
  Serious: Yes (Hospitalization)
  Sender: FDA-Public Use
  Company Number: None

PATIENT
  Age: 89 Year
  Sex: Female

DRUGS (1)
  1. VOTRIENT [Suspect]
     Active Substance: PAZOPANIB HYDROCHLORIDE
     Route: 048
     Dates: start: 20180306

REACTIONS (5)
  - Cholelithiasis [None]
  - Biliary obstruction [None]
  - Malignant neoplasm progression [None]
  - Cholecystitis acute [None]
  - Cardiac disorder [None]

NARRATIVE: CASE EVENT DATE: 20201117
